FAERS Safety Report 25945417 (Version 3)
Quarter: 2025Q4

REPORT INFORMATION
  Report Type: Spontaneous
  Country: TR (occurrence: TR)
  Receive Date: 20251021
  Receipt Date: 20251117
  Transmission Date: 20260118
  Serious: Yes (Hospitalization)
  Sender: ELI LILLY AND COMPANY
  Company Number: TR-ELI_LILLY_AND_COMPANY-TR202510018083

PATIENT
  Age: 35 Year
  Sex: Male
  Weight: 83 kg

DRUGS (1)
  1. MOUNJARO [Suspect]
     Active Substance: TIRZEPATIDE
     Indication: Weight control
     Dosage: 5 MG, UNKNOWN
     Route: 058
     Dates: start: 20251008

REACTIONS (13)
  - Tremor [Not Recovered/Not Resolved]
  - Chills [Not Recovered/Not Resolved]
  - Alanine aminotransferase increased [Recovering/Resolving]
  - Aspartate aminotransferase increased [Recovered/Resolved]
  - Hepatitis toxic [Unknown]
  - Feeling cold [Unknown]
  - Blood lactate dehydrogenase increased [Unknown]
  - Drug dose titration not performed [Unknown]
  - Confusional state [Unknown]
  - Depressed level of consciousness [Unknown]
  - Gastrointestinal disorder [Unknown]
  - Gastrooesophageal reflux disease [Unknown]
  - Constipation [Unknown]

NARRATIVE: CASE EVENT DATE: 20251009
